FAERS Safety Report 10262572 (Version 1)
Quarter: 2014Q2

REPORT INFORMATION
  Report Type: Report from Study
  Country: TR (occurrence: TR)
  Receive Date: 20140626
  Receipt Date: 20140626
  Transmission Date: 20141212
  Serious: Yes (Other)
  Sender: FDA-Public Use
  Company Number: TR-BAXTER-2014BAX034917

PATIENT
  Sex: 0

DRUGS (3)
  1. KIOVIG 2.5/25 ML IV INF?ZYON I?IN ??ZELTI I?EREN FLAKON [Suspect]
     Indication: TRANSPLANT REJECTION
     Dosage: 2 G/KG
     Route: 042
  2. METHYLPREDNISOLONE [Suspect]
     Indication: TRANSPLANT REJECTION
     Route: 042
  3. RITUXIMAB [Suspect]
     Indication: TRANSPLANT REJECTION
     Route: 065

REACTIONS (1)
  - Transplant rejection [Not Recovered/Not Resolved]
